FAERS Safety Report 16220434 (Version 1)
Quarter: 2019Q2

REPORT INFORMATION
  Report Type: Spontaneous
  Country: FR (occurrence: FR)
  Receive Date: 20190420
  Receipt Date: 20190420
  Transmission Date: 20190711
  Serious: Yes (Other)
  Sender: FDA-Public Use
  Company Number: PHHY2019FR088572

PATIENT
  Age: 24 Year
  Sex: Male

DRUGS (2)
  1. ATRACURIUM [Suspect]
     Active Substance: ATRACURIUM
     Indication: GENERAL ANAESTHESIA
     Dosage: 40 MG, UNK
     Route: 042
     Dates: start: 20190331, end: 20190331
  2. VANCOMYCIN [Suspect]
     Active Substance: VANCOMYCIN
     Indication: ANTIBIOTIC PROPHYLAXIS
     Dosage: 15 MG TOTAL
     Route: 042
     Dates: start: 20190331, end: 20190331

REACTIONS (2)
  - Bronchospasm [Recovered/Resolved]
  - Injection site erythema [Recovered/Resolved]

NARRATIVE: CASE EVENT DATE: 20190331
